FAERS Safety Report 6381926-9 (Version None)
Quarter: 2009Q3

REPORT INFORMATION
  Report Type: 
  Country: None (occurrence: None)
  Receive Date: 20090930
  Receipt Date: 20090922
  Transmission Date: 20100115
  Serious: Yes (Hospitalization, Other)
  Sender: FDA-Public Use
  Company Number: CN-ROCHE-658083

PATIENT
  Age: 24 Year
  Sex: Female
  Weight: 43 kg

DRUGS (3)
  1. PEGASYS [Suspect]
     Indication: HEPATITIS B
     Route: 058
     Dates: start: 20090301, end: 20090914
  2. UNSPECIFIED DRUG [Concomitant]
     Indication: PLATELET COUNT DECREASED
     Dates: start: 20090921
  3. THYMOPEPTIDE [Concomitant]
     Indication: PLATELET COUNT DECREASED
     Dates: start: 20090923

REACTIONS (2)
  - MENORRHAGIA [None]
  - PLATELET COUNT DECREASED [None]
